FAERS Safety Report 12806259 (Version 1)
Quarter: 2016Q4

REPORT INFORMATION
  Report Type: Spontaneous
  Country: US (occurrence: US)
  Receive Date: 20161003
  Receipt Date: 20161003
  Transmission Date: 20170207
  Serious: Yes (Other)
  Sender: FDA-Public Use
  Company Number: None

PATIENT
  Age: 36 Year
  Sex: Female
  Weight: 94.5 kg

DRUGS (20)
  1. CLINDAMYCIN. [Suspect]
     Active Substance: CLINDAMYCIN
     Indication: PHARYNGITIS
     Dosage: ?          QUANTITY:23 CAPSULE(S);?
     Route: 048
     Dates: start: 20160926, end: 20161003
  2. CYMBALTA [Concomitant]
     Active Substance: DULOXETINE HYDROCHLORIDE
  3. IPRATROPIUM BROMIDE NASAL SOL [Concomitant]
  4. NAMENDA [Concomitant]
     Active Substance: MEMANTINE HYDROCHLORIDE
  5. GUAIFENESIN (MUCINEX) [Concomitant]
  6. DEPAKOTE [Concomitant]
     Active Substance: DIVALPROEX SODIUM
  7. CLONAZEPAM. [Concomitant]
     Active Substance: CLONAZEPAM
  8. ZONISAMIDE. [Concomitant]
     Active Substance: ZONISAMIDE
  9. LOW DOSE NALTREXONE) [Concomitant]
  10. ADDERALL [Concomitant]
     Active Substance: AMPHETAMINE ASPARTATE\AMPHETAMINE SULFATE\DEXTROAMPHETAMINE SACCHARATE\DEXTROAMPHETAMINE SULFATE
  11. PLAQUENIL [Concomitant]
     Active Substance: HYDROXYCHLOROQUINE SULFATE
  12. SEROQUEL [Concomitant]
     Active Substance: QUETIAPINE FUMARATE
  13. DULERA [Concomitant]
     Active Substance: FORMOTEROL FUMARATE DIHYDRATE\MOMETASONE FUROATE
  14. IBUPROFEN (NSAID) [Concomitant]
  15. ZYRTEC [Concomitant]
     Active Substance: CETIRIZINE HYDROCHLORIDE
  16. NETI-POT--WARM WATER SALINE RINSE FOR SINUS CAVITIES [Concomitant]
  17. QVAR [Concomitant]
     Active Substance: BECLOMETHASONE DIPROPIONATE
  18. SINGULAIR [Concomitant]
     Active Substance: MONTELUKAST SODIUM
  19. LYRICA [Concomitant]
     Active Substance: PREGABALIN
  20. FEMOTIDINE [Concomitant]

REACTIONS (2)
  - Arthralgia [None]
  - Back pain [None]

NARRATIVE: CASE EVENT DATE: 20160928
